FAERS Safety Report 5390974-7 (Version None)
Quarter: 2007Q3

REPORT INFORMATION
  Report Type: 
  Country: None (occurrence: None)
  Receive Date: 20070716
  Receipt Date: 20070402
  Transmission Date: 20080115
  Serious: Yes (Death)
  Sender: FDA-Public Use
  Company Number: MPS1-10680

PATIENT
  Age: 23 Month
  Sex: Female
  Weight: 15.4 kg

DRUGS (1)
  1. ALDURAZYME [Suspect]
     Indication: MUCOPOLYSACCHARIDOSIS I
     Dates: start: 20060501, end: 20061009

REACTIONS (7)
  - ADRENAL INSUFFICIENCY [None]
  - CARDIAC ARREST [None]
  - DIARRHOEA [None]
  - DISSEMINATED INTRAVASCULAR COAGULATION [None]
  - HYPOTENSION [None]
  - SEPTIC SHOCK [None]
  - VOMITING [None]
